FAERS Safety Report 9441732 (Version 1)
Quarter: 2013Q3

REPORT INFORMATION
  Report Type: Spontaneous
  Country: GB (occurrence: GB)
  Receive Date: 20130806
  Receipt Date: 20130806
  Transmission Date: 20140515
  Serious: Yes (Other)
  Sender: FDA-Public Use
  Company Number: GB-ROCHE-1256950

PATIENT
  Age: 46 Year
  Sex: Female

DRUGS (1)
  1. ORLISTAT [Suspect]
     Indication: OBESITY
     Route: 048
     Dates: start: 20130613, end: 20130705

REACTIONS (6)
  - Somnolence [Recovering/Resolving]
  - Somnolence [Recovering/Resolving]
  - Miosis [Recovering/Resolving]
  - Hypopnoea [Recovering/Resolving]
  - Dysarthria [Recovering/Resolving]
  - Fatigue [Recovering/Resolving]
